FAERS Safety Report 10376987 (Version 1)
Quarter: 2014Q3

REPORT INFORMATION
  Report Type: Spontaneous
  Country: US (occurrence: US)
  Receive Date: 20140812
  Receipt Date: 20140812
  Transmission Date: 20150326
  Serious: Yes (Other)
  Sender: FDA-Public Use
  Company Number: US-SUN PHARMACEUTICAL INDUSTRIES LTD-2014SUN01702

PATIENT

DRUGS (1)
  1. ALENDRONATE SODIUM 70MG TABLET [Suspect]
     Active Substance: ALENDRONATE SODIUM
     Indication: PRODUCT USED FOR UNKNOWN INDICATION
     Route: 065

REACTIONS (5)
  - Spinal fracture [Unknown]
  - Polyuria [Unknown]
  - Weight increased [Unknown]
  - Blood pressure decreased [Unknown]
  - Dry mouth [Unknown]
